FAERS Safety Report 6338948-3 (Version None)
Quarter: 2009Q3

REPORT INFORMATION
  Report Type: 
  Country: None (occurrence: None)
  Receive Date: 20090903
  Receipt Date: 20090827
  Transmission Date: 20100115
  Serious: Yes (Hospitalization, Other)
  Sender: FDA-Public Use
  Company Number: PHEH2007US13320

PATIENT
  Sex: Female

DRUGS (12)
  1. AREDIA [Suspect]
  2. ZOMETA [Suspect]
     Dosage: UNK
  3. REVLIMID [Concomitant]
  4. DECADRON                                /CAN/ [Concomitant]
  5. DOXIL [Concomitant]
  6. VELCADE [Concomitant]
  7. RADIATION THERAPY [Concomitant]
  8. CHEMOTHERAPEUTICS NOS [Concomitant]
  9. MAGNESIUM OXIDE [Concomitant]
     Dosage: 400 MG, BID
  10. AVALIDE [Concomitant]
     Dosage: 12.5 MG, QD
  11. XANAX [Concomitant]
     Dosage: 0.5 MG, QD
  12. K-DUR [Concomitant]
     Dosage: 20 MEQ, BID

REACTIONS (20)
  - ARTHRALGIA [None]
  - BLOOD CALCIUM INCREASED [None]
  - BONE MARROW TRANSPLANT [None]
  - DECREASED APPETITE [None]
  - DEFORMITY [None]
  - DEPRESSION [None]
  - DIABETES MELLITUS [None]
  - DYSAESTHESIA [None]
  - HERPES ZOSTER [None]
  - INFECTION [None]
  - INSOMNIA [None]
  - JOINT SURGERY [None]
  - LOWER LIMB FRACTURE [None]
  - NERVOUSNESS [None]
  - NEUROPATHY PERIPHERAL [None]
  - OSTEONECROSIS [None]
  - PAIN [None]
  - PERINEURIAL CYST [None]
  - SUICIDAL IDEATION [None]
  - WEIGHT DECREASED [None]
